FAERS Safety Report 8187126-4 (Version None)
Quarter: 2012Q1

REPORT INFORMATION
  Report Type: 
  Country: None (occurrence: None)
  Receive Date: 20120301
  Receipt Date: 20120221
  Transmission Date: 20120608
  Serious: Yes (Hospitalization, Disabling, Other)
  Sender: FDA-Public Use
  Company Number: 2011SP027264

PATIENT
  Age: 43 Year
  Sex: Female
  Weight: 64.4108 kg

DRUGS (2)
  1. NUVARING [Suspect]
     Indication: HORMONE REPLACEMENT THERAPY
     Dates: start: 20100701, end: 20110207
  2. NUVARING [Suspect]
     Indication: MENORRHAGIA
     Dates: start: 20100701, end: 20110207

REACTIONS (20)
  - ANAEMIA [None]
  - LOBAR PNEUMONIA [None]
  - INFLUENZA [None]
  - STRESS [None]
  - CHOLELITHIASIS [None]
  - PULMONARY EMBOLISM [None]
  - MUSCULOSKELETAL CHEST PAIN [None]
  - MUSCULOSKELETAL PAIN [None]
  - INTERNATIONAL NORMALISED RATIO INCREASED [None]
  - FACTOR II DEFICIENCY [None]
  - UTERINE LEIOMYOMA [None]
  - CHOLECYSTITIS [None]
  - TRICUSPID VALVE INCOMPETENCE [None]
  - MITRAL VALVE INCOMPETENCE [None]
  - SCAR [None]
  - ACTIVATED PARTIAL THROMBOPLASTIN TIME PROLONGED [None]
  - PELVIC VENOUS THROMBOSIS [None]
  - DEPRESSION [None]
  - PULMONARY INFARCTION [None]
  - DEEP VEIN THROMBOSIS [None]
